FAERS Safety Report 5462439-5 (Version None)
Quarter: 2007Q3

REPORT INFORMATION
  Report Type: 
  Country: None (occurrence: None)
  Receive Date: 20070920
  Receipt Date: 20070912
  Transmission Date: 20080115
  Serious: Yes (Hospitalization)
  Sender: FDA-Public Use
  Company Number: NO-JNJFOC-20070902863

PATIENT
  Sex: Male

DRUGS (4)
  1. REMICADE [Suspect]
     Route: 042
  2. REMICADE [Suspect]
     Indication: ANKYLOSING SPONDYLITIS
     Route: 042
  3. IBUPROFEN [Concomitant]
  4. PARACETAMOL [Concomitant]

REACTIONS (4)
  - ASTHENIA [None]
  - CHILLS [None]
  - FATIGUE [None]
  - SLEEP DISORDER [None]
